FAERS Safety Report 19289276 (Version 2)
Quarter: 2021Q2

REPORT INFORMATION
  Report Type: Spontaneous
  Country: NL (occurrence: ES)
  Receive Date: 20210521
  Receipt Date: 20210521
  Transmission Date: 20210717
  Serious: Yes (Hospitalization)
  Sender: FDA-Public Use
  Company Number: ES-FRESENIUS KABI-FK202104895

PATIENT
  Age: 68 Year
  Sex: Male

DRUGS (3)
  1. PIPERACILLIN/TAZOBACTAM (MANUFACTURER UNKNOWN) [Suspect]
     Active Substance: PIPERACILLIN SODIUM\TAZOBACTAM SODIUM
     Indication: POSTOPERATIVE WOUND INFECTION
     Dosage: 4 G / 6 H
     Route: 042
     Dates: start: 20210213, end: 20210220
  2. METAMIZOLE [Suspect]
     Active Substance: METAMIZOLE
     Indication: ANALGESIC THERAPY
     Dosage: 2 G / 8 H
     Route: 042
     Dates: start: 20210206, end: 20210223
  3. LINEZOLID (MANUFACTURER UNKNOWN) [Suspect]
     Active Substance: LINEZOLID
     Indication: POSTOPERATIVE WOUND INFECTION
     Dosage: 600 MG / 12 H
     Route: 042
     Dates: start: 20210214, end: 20210224

REACTIONS (4)
  - Drug reaction with eosinophilia and systemic symptoms [Recovered/Resolved]
  - Cholestasis [Recovered/Resolved]
  - Lymphadenopathy [Recovered/Resolved]
  - Acute kidney injury [Recovered/Resolved]

NARRATIVE: CASE EVENT DATE: 20210216
